FAERS Safety Report 7909209-3 (Version None)
Quarter: 2011Q4

REPORT INFORMATION
  Report Type: 
  Country: None (occurrence: None)
  Receive Date: 20111111
  Receipt Date: 20110921
  Transmission Date: 20120403
  Serious: Yes (Death, Hospitalization)
  Sender: FDA-Public Use
  Company Number: US-ELI_LILLY_AND_COMPANY-US201002005919

PATIENT
  Sex: Female
  Weight: 73.016 kg

DRUGS (15)
  1. LEVOTHYROXINE SODIUM [Concomitant]
     Dosage: 175 UG, DAILY (1/D)
     Route: 048
  2. PREMARIN [Concomitant]
     Dosage: 0.625 MG, DAILY (1/D)
  3. MULTI-VITAMIN [Concomitant]
     Dosage: UNK, DAILY (1/D)
  4. SPIRIVA [Concomitant]
     Dosage: UNK, DAILY (1/D)
  5. HYZAAR [Concomitant]
     Dosage: UNK, DAILY (1/D)
  6. PEMETREXED [Suspect]
     Indication: NON-SMALL CELL LUNG CANCER METASTATIC
     Dosage: 910 MG, OTHER
     Route: 042
     Dates: start: 20080915, end: 20081006
  7. VERAPAMIL [Concomitant]
     Dosage: 180 MG, DAILY (1/D)
     Route: 048
  8. POTASSIUM CHLORIDE [Concomitant]
     Dosage: UNK, DAILY (1/D)
  9. PROAIR HFA [Concomitant]
     Dosage: UNK, DAILY (1/D)
  10. ACTONEL [Concomitant]
     Dosage: 5 MG, OTHER
  11. VICODIN [Concomitant]
     Dosage: UNK, AS NEEDED
  12. OXYCONTIN [Concomitant]
  13. VITAMIN E /001105/ [Concomitant]
     Dosage: UNK, DAILY (1/D)
  14. FOLIC ACID [Concomitant]
     Dosage: UNK, DAILY (1/D)
  15. CETUXIMAB [Suspect]
     Indication: NON-SMALL CELL LUNG CANCER METASTATIC
     Dosage: 462 MG, OTHER
     Route: 042
     Dates: start: 20080915, end: 20081006

REACTIONS (14)
  - EPISTAXIS [None]
  - WHITE BLOOD CELL COUNT DECREASED [None]
  - KLEBSIELLA TEST POSITIVE [None]
  - NEOPLASM PROGRESSION [None]
  - BACK PAIN [None]
  - URINARY TRACT INFECTION [None]
  - HAEMOGLOBIN DECREASED [None]
  - NEUTROPHIL COUNT DECREASED [None]
  - ENTEROCOCCUS TEST POSITIVE [None]
  - PSEUDOMONAS TEST POSITIVE [None]
  - NEOPLASM MALIGNANT [None]
  - NON-SMALL CELL LUNG CANCER METASTATIC [None]
  - PLATELET COUNT DECREASED [None]
  - MUSCULOSKELETAL PAIN [None]
